FAERS Safety Report 23537387 (Version 1)
Quarter: 2024Q1

REPORT INFORMATION
  Report Type: Spontaneous
  Country: US (occurrence: US)
  Receive Date: 20240219
  Receipt Date: 20240219
  Transmission Date: 20240410
  Serious: No
  Sender: FDA-Public Use
  Company Number: US-JNJFOC-20240250929

PATIENT
  Age: 37 Year
  Sex: Female
  Weight: 65.8 kg

DRUGS (24)
  1. OPSUMIT [Suspect]
     Active Substance: MACITENTAN
     Indication: Product used for unknown indication
     Route: 048
  2. TREPROSTINIL [Suspect]
     Active Substance: TREPROSTINIL
     Indication: Pulmonary hypertension
     Dosage: ORENITRAM 5 MG, 0.25 MG, 0.125 MG AND 1 MG AND THE CURRENT DOSE WAS REPORTED AS 12 MG IN AM AND PM A
     Route: 048
  3. TREPROSTINIL [Suspect]
     Active Substance: TREPROSTINIL
     Dosage: 12.375 MG IN THE MORNING AND AFTERNOON AND 12.5 MG IN THE EVENING,
     Route: 048
  4. TREPROSTINIL [Suspect]
     Active Substance: TREPROSTINIL
     Route: 048
     Dates: start: 20220915
  5. ADEMPAS [Concomitant]
     Active Substance: RIOCIGUAT
  6. FAMOTIDINE [Concomitant]
     Active Substance: FAMOTIDINE
  7. VITAMIN D3 [Concomitant]
     Active Substance: CHOLECALCIFEROL
  8. IMODIUM [Concomitant]
     Active Substance: LOPERAMIDE HYDROCHLORIDE
  9. ADVAIR HFA [Concomitant]
     Active Substance: FLUTICASONE PROPIONATE\SALMETEROL XINAFOATE
  10. TAB A VITE [Concomitant]
  11. PARAGARD T 380A [Concomitant]
     Active Substance: COPPER
  12. VITAMIN D2 [Concomitant]
     Active Substance: ERGOCALCIFEROL
  13. SODIUM CHLORIDE [Concomitant]
     Active Substance: SODIUM CHLORIDE
  14. OXYGEN [Concomitant]
     Active Substance: OXYGEN
  15. MONTELUKAST SODIUM [Concomitant]
     Active Substance: MONTELUKAST SODIUM
  16. LATANOPROST [Concomitant]
     Active Substance: LATANOPROST
  17. SPIRONOLACTONE [Concomitant]
     Active Substance: SPIRONOLACTONE
  18. DORZOLAMIDE [Concomitant]
     Active Substance: DORZOLAMIDE
  19. DIGOXIN [Concomitant]
     Active Substance: DIGOXIN
  20. OMEPRAZOLE [Concomitant]
     Active Substance: OMEPRAZOLE
  21. CETIRIZINE HCL [Concomitant]
     Active Substance: CETIRIZINE HYDROCHLORIDE
  22. FERROUS SULFATE [Concomitant]
     Active Substance: FERROUS SULFATE
  23. MUCINEX [Concomitant]
     Active Substance: GUAIFENESIN
  24. THERA-M [Concomitant]

REACTIONS (5)
  - Diarrhoea [Not Recovered/Not Resolved]
  - Flushing [Not Recovered/Not Resolved]
  - Pain in jaw [Not Recovered/Not Resolved]
  - Fatigue [Not Recovered/Not Resolved]
  - Headache [Unknown]
